FAERS Safety Report 9723370 (Version 1)
Quarter: 2013Q4

REPORT INFORMATION
  Report Type: Spontaneous
  Country: US (occurrence: US)
  Receive Date: 20131202
  Receipt Date: 20131202
  Transmission Date: 20140711
  Serious: No
  Sender: FDA-Public Use
  Company Number: US-GLAXOSMITHKLINE-A1036328A

PATIENT
  Sex: Female

DRUGS (2)
  1. FLOVENT [Suspect]
     Dosage: 2PUFF TWICE PER DAY
     Route: 055
  2. VENTOLIN [Suspect]
     Dosage: 2PUFF AS REQUIRED
     Route: 055

REACTIONS (2)
  - Overdose [Unknown]
  - Drug ineffective [Unknown]
